FAERS Safety Report 7693608-1 (Version None)
Quarter: 2011Q3

REPORT INFORMATION
  Report Type: 
  Country: None (occurrence: None)
  Receive Date: 20110819
  Receipt Date: 20110811
  Transmission Date: 20111222
  Serious: Yes (Death, Hospitalization)
  Sender: FDA-Public Use
  Company Number: PHEH2011US01290

PATIENT
  Sex: Male
  Weight: 69.388 kg

DRUGS (19)
  1. TOBI [Suspect]
     Indication: BRONCHIECTASIS
     Dosage: 300 MG, TWICE A DAY ON A CYCLE OF 28 DAYS ON AND 28 DAYS OFF
     Dates: start: 20110617, end: 20110618
  2. CELLCEPT [Concomitant]
     Dosage: 500 MG, BID
  3. REGLAN [Concomitant]
     Dosage: 10 MG, QD
  4. METOPROLOL SUCCINATE [Concomitant]
     Dosage: 25 MG,
  5. FLORINEF [Concomitant]
     Dosage: 0.1 MG,THREE TIMES WEEKLY
  6. BACTRIM DS [Concomitant]
     Dosage: 1 DF, THREE TIMES WEEKLY
  7. MAGNESIUM OXIDE [Concomitant]
     Dosage: 800 MG, QD
  8. FOLIC ACID [Concomitant]
     Dosage: 1 MG, QD
  9. FERROUS SULFATE TAB [Concomitant]
     Dosage: 325 MG, QID
  10. PROTONIX [Concomitant]
     Dosage: 40 MG, QD
  11. PRAVASTATIN [Concomitant]
     Dosage: 20 MG, QD
  12. LACTOBACILLUS [Concomitant]
     Dosage: UNK
  13. PROGRAF [Concomitant]
     Dosage: 6 MG, BID
  14. CALCIUM CITRATE [Concomitant]
     Dosage: 1 DF, BID
  15. MULTI-VITAMIN [Concomitant]
     Dosage: 1 DF, QD
  16. PREDNISONE [Concomitant]
     Dosage: 15 MG, QD
  17. JANUVIA [Concomitant]
     Dosage: 50 MG, QD
  18. VORICONAZOLE [Concomitant]
     Dosage: 200 MG, BID
  19. VALCYTE [Concomitant]
     Dosage: 450 MG, BID

REACTIONS (13)
  - TACHYCARDIA [None]
  - CREPITATIONS [None]
  - BRAIN DEATH [None]
  - LEUKOENCEPHALOPATHY [None]
  - MENTAL DISORDER [None]
  - LETHARGY [None]
  - INCONTINENCE [None]
  - BRAIN OEDEMA [None]
  - CONVULSION [None]
  - CSF WHITE BLOOD CELL COUNT INCREASED [None]
  - CONFUSIONAL STATE [None]
  - UNRESPONSIVE TO STIMULI [None]
  - NAUSEA [None]
